FAERS Safety Report 25686028 (Version 1)
Quarter: 2025Q3

REPORT INFORMATION
  Report Type: Spontaneous
  Country: US (occurrence: None)
  Receive Date: 20250815
  Receipt Date: 20250815
  Transmission Date: 20251020
  Serious: Yes (Life-Threatening)
  Sender: FDA-CTU
  Company Number: None

PATIENT
  Age: 23 Year
  Sex: Female
  Weight: 61.2 kg

DRUGS (3)
  1. AJOVY [Suspect]
     Active Substance: FREMANEZUMAB-VFRM
     Indication: Migraine
     Route: 058
     Dates: start: 20250624, end: 20250625
  2. NURTEC ODT [Concomitant]
     Active Substance: RIMEGEPANT SULFATE
     Dates: start: 20240806
  3. DepoProvera IM [Concomitant]
     Dates: start: 20240801

REACTIONS (3)
  - Anaphylactic reaction [None]
  - Allergy to arthropod sting [None]
  - Injection site pain [None]

NARRATIVE: CASE EVENT DATE: 20250624
